FAERS Safety Report 10569260 (Version 1)
Quarter: 2014Q4

REPORT INFORMATION
  Report Type: Spontaneous
  Country: JP (occurrence: JP)
  Receive Date: 20141106
  Receipt Date: 20141106
  Transmission Date: 20150529
  Serious: Yes (Other)
  Sender: FDA-Public Use
  Company Number: JP-009507513-1411JPN001831

PATIENT
  Sex: Female

DRUGS (2)
  1. ESLAX [Suspect]
     Active Substance: ROCURONIUM BROMIDE
     Indication: NEUROMUSCULAR BLOCKING THERAPY
     Dosage: 70 MG, QD
     Dates: start: 20140609, end: 20140609
  2. BRIDION [Suspect]
     Active Substance: SUGAMMADEX
     Dosage: 200 MG, QD
     Dates: start: 20140609, end: 20140609

REACTIONS (1)
  - Low birth weight baby [Unknown]

NARRATIVE: CASE EVENT DATE: 20140609
